FAERS Safety Report 23681549 (Version 2)
Quarter: 2024Q1

REPORT INFORMATION
  Report Type: Report from Study
  Country: CA (occurrence: None)
  Receive Date: 20240328
  Receipt Date: 20240329
  Transmission Date: 20240410
  Serious: Yes (Hospitalization)
  Sender: FDA-Public Use
  Company Number: 2024A072548

PATIENT
  Sex: Female

DRUGS (4)
  1. FASENRA [Suspect]
     Active Substance: BENRALIZUMAB
     Indication: Asthma
     Dosage: 30.0MG UNKNOWN
     Route: 058
     Dates: start: 20230822
  2. INCRUSE ELLIPTA [Concomitant]
     Active Substance: UMECLIDINIUM BROMIDE
     Dosage: 62.5MCG 1 INH. DIE
     Dates: start: 2023
  3. BREO ELLIPTA [Concomitant]
     Active Substance: FLUTICASONE FUROATE\VILANTEROL TRIFENATATE
     Dosage: DOSE: 200MCG 1 INH. DIE
     Dates: start: 2023
  4. VENTOLIN [Concomitant]
     Active Substance: ALBUTEROL SULFATE
     Dosage: 100MCG 2 INH QID
     Dates: start: 2023

REACTIONS (8)
  - Respiratory disorder [Unknown]
  - White blood cell count increased [Unknown]
  - Oxygen saturation decreased [Unknown]
  - Confusional state [Unknown]
  - Tremor [Unknown]
  - Pneumonia [Unknown]
  - Lung disorder [Unknown]
  - Drug ineffective [Unknown]
